FAERS Safety Report 23554747 (Version 1)
Quarter: 2024Q1

REPORT INFORMATION
  Report Type: Spontaneous
  Country: US (occurrence: US)
  Receive Date: 20240222
  Receipt Date: 20240222
  Transmission Date: 20240410
  Serious: No
  Sender: FDA-Public Use
  Company Number: US-LANTHEUS-LMI-2023-01188

PATIENT
  Age: 71 Year
  Sex: Male

DRUGS (20)
  1. DEFINITY [Suspect]
     Active Substance: PERFLUTREN
     Indication: Echocardiogram
     Dosage: 3 MILLILITRE (1.3 ML DEFINITY PREPARED IN 8.7 ML DILUENT)
     Route: 042
     Dates: start: 20231005, end: 20231005
  2. ASPIRIN [Concomitant]
     Active Substance: ASPIRIN
     Indication: Product used for unknown indication
     Dosage: UNK
  3. ACETAMINOPHEN [Concomitant]
     Active Substance: ACETAMINOPHEN
     Indication: Product used for unknown indication
     Dosage: UNK
  4. VITAMIN C [Concomitant]
     Active Substance: ASCORBIC ACID
     Indication: Product used for unknown indication
     Dosage: UNK
  5. VITAMIN D NOS [Concomitant]
     Active Substance: VITAMIN D NOS
     Indication: Product used for unknown indication
     Dosage: UNK
  6. CALCIUM CARBONATE [Concomitant]
     Active Substance: CALCIUM CARBONATE
     Indication: Product used for unknown indication
     Dosage: UNK
  7. CLOPIDOGREL [Concomitant]
     Active Substance: CLOPIDOGREL BISULFATE
     Indication: Product used for unknown indication
     Dosage: UNK
  8. DOCUSATE SODIUM [Concomitant]
     Active Substance: DOCUSATE SODIUM
     Indication: Product used for unknown indication
     Dosage: UNK
  9. TRULICITY [Concomitant]
     Active Substance: DULAGLUTIDE
     Indication: Product used for unknown indication
     Dosage: UNK
  10. FERROUS FUMARATE [Concomitant]
     Active Substance: FERROUS FUMARATE
     Indication: Product used for unknown indication
     Dosage: UNK
  11. GABAPENTIN [Concomitant]
     Active Substance: GABAPENTIN
     Indication: Product used for unknown indication
     Dosage: UNK
  12. GLIPIZIDE [Concomitant]
     Active Substance: GLIPIZIDE
     Indication: Product used for unknown indication
     Dosage: UNK
  13. INSULIN NOS [Concomitant]
     Active Substance: INSULIN NOS
     Indication: Product used for unknown indication
     Dosage: EP, UNK
  14. HUMULIN R [Concomitant]
     Active Substance: INSULIN HUMAN
     Indication: Product used for unknown indication
     Dosage: UNK
  15. METFORMIN [Concomitant]
     Active Substance: METFORMIN HYDROCHLORIDE
     Indication: Product used for unknown indication
     Dosage: UNK
  16. KETOCONAZOLE [Concomitant]
     Active Substance: KETOCONAZOLE
     Indication: Product used for unknown indication
     Dosage: UNK
  17. LOPRESSOR [Concomitant]
     Active Substance: METOPROLOL TARTRATE
     Indication: Product used for unknown indication
     Dosage: UNK
  18. OMEGA-3 FATTY ACIDS [Concomitant]
     Active Substance: OMEGA-3 FATTY ACIDS
     Indication: Product used for unknown indication
     Dosage: UNK
  19. TERAZOSIN [Concomitant]
     Active Substance: TERAZOSIN HYDROCHLORIDE
     Indication: Product used for unknown indication
     Dosage: UNK
  20. SACUBITRIL\VALSARTAN [Concomitant]
     Active Substance: SACUBITRIL\VALSARTAN
     Indication: Product used for unknown indication
     Dosage: UNK

REACTIONS (4)
  - Muscle spasms [Recovered/Resolved]
  - Tremor [Recovered/Resolved]
  - Back pain [Recovered/Resolved]
  - Pain [Recovered/Resolved]

NARRATIVE: CASE EVENT DATE: 20231005
